FAERS Safety Report 4507003-7 (Version None)
Quarter: 2004Q4

REPORT INFORMATION
  Report Type: 
  Country: None (occurrence: None)
  Receive Date: 20041117
  Receipt Date: 20041104
  Transmission Date: 20050328
  Serious: Yes (Death)
  Sender: FDA-Public Use
  Company Number: 2004-CN-00398CN

PATIENT
  Age: 36 Year
  Sex: Male

DRUGS (4)
  1. MICARDIS HCT [Suspect]
     Indication: HYPERTENSION
     Dosage: 80 MG PO
     Route: 048
     Dates: start: 20031106, end: 20040823
  2. MONOCOR         (BISOPROLOL FUMARATE) [Concomitant]
  3. NORVASC [Concomitant]
  4. XENICAL [Concomitant]

REACTIONS (3)
  - ARRHYTHMIA [None]
  - CARDIAC DISORDER [None]
  - THROAT IRRITATION [None]
